FAERS Safety Report 4457392-7 (Version None)
Quarter: 2004Q3

REPORT INFORMATION
  Report Type: 
  Country: None (occurrence: None)
  Receive Date: 20040922
  Receipt Date: 20040922
  Transmission Date: 20050211
  Serious: Yes (Other)
  Sender: FDA-Public Use
  Company Number: 200408127

PATIENT
  Age: 81 Year
  Sex: Female

DRUGS (2)
  1. BRIMONIDINE TARTRATE OPHTHALMIC SOLUTION 0.2% [Suspect]
     Indication: OPEN ANGLE GLAUCOMA
  2. CARTEOLOL HCL [Concomitant]

REACTIONS (7)
  - CONJUNCTIVAL SCAR [None]
  - CONJUNCTIVITIS ALLERGIC [None]
  - CORNEAL DEPOSITS [None]
  - EYE DISORDER [None]
  - GRANULOMA [None]
  - IRIDOCYCLITIS [None]
  - SYMBLEPHARON [None]
